FAERS Safety Report 8966231 (Version 1)
Quarter: 2012Q4

REPORT INFORMATION
  Report Type: Report from Study
  Country: IT (occurrence: IT)
  Receive Date: 20121214
  Receipt Date: 20121214
  Transmission Date: 20130627
  Serious: Yes (Life-Threatening, Hospitalization)
  Sender: FDA-Public Use
  Company Number: IT-GENZYME-CLOF-1002426

PATIENT
  Age: 45 Year
  Sex: Male
  Weight: 84 kg

DRUGS (13)
  1. EVOLTRA [Suspect]
     Indication: ACUTE LYMPHOCYTIC LEUKAEMIA
     Dosage: UNK, cumulative dose 400 mg
     Route: 065
     Dates: start: 20121018, end: 20121022
  2. CYCLOPHOSPHAMIDE [Suspect]
     Indication: ACUTE LYMPHOCYTIC LEUKAEMIA
     Dosage: UNK, cumulative dose 4000 mg
     Route: 065
     Dates: start: 20121018, end: 20121022
  3. TRIATEC [Concomitant]
     Indication: HYPERTENSION
     Dosage: 25 mg, UNK
     Route: 048
     Dates: start: 2011, end: 20121104
  4. LANSOPRAZOLE [Concomitant]
     Indication: PRODUCT USED FOR UNKNOWN INDICATION
     Dosage: 30 mg, UNK
     Route: 048
     Dates: start: 20121013, end: 20121104
  5. ACYCLOVIR [Concomitant]
     Indication: PRODUCT USED FOR UNKNOWN INDICATION
     Dosage: 800 mg, UNK
     Route: 048
     Dates: start: 2012, end: 20121116
  6. CLEXANE [Concomitant]
     Indication: PRODUCT USED FOR UNKNOWN INDICATION
     Dosage: 4000 iu, UNK
     Route: 058
     Dates: start: 201207, end: 20121116
  7. DELTACORTENE [Concomitant]
     Indication: PRODUCT USED FOR UNKNOWN INDICATION
     Dosage: 25 mg, UNK
     Route: 048
     Dates: start: 20121019, end: 20121116
  8. TEVAGRASTIM [Concomitant]
     Indication: PRODUCT USED FOR UNKNOWN INDICATION
     Dosage: 34000000 iu, UNK
     Route: 058
     Dates: start: 20121023, end: 20121104
  9. DIFLUCAN [Concomitant]
     Indication: PRODUCT USED FOR UNKNOWN INDICATION
     Dosage: 400 mg, UNK
     Route: 065
     Dates: start: 20121023, end: 20121116
  10. TAZOCIN [Concomitant]
     Indication: PRODUCT USED FOR UNKNOWN INDICATION
     Dosage: UNK, Dose: 4,5 gx 3
     Route: 065
     Dates: start: 20121031, end: 20121116
  11. BACTRIM [Concomitant]
     Indication: PRODUCT USED FOR UNKNOWN INDICATION
     Dosage: UNK, 160/ 800 mg
     Route: 048
     Dates: start: 201206, end: 20121104
  12. TYGACIL [Concomitant]
     Indication: PRODUCT USED FOR UNKNOWN INDICATION
     Dosage: 150 mg, UNK
     Route: 065
     Dates: start: 20121104, end: 20121104
  13. ZYVOXID [Concomitant]
     Indication: PRODUCT USED FOR UNKNOWN INDICATION
     Dosage: 1200 mg, UNK
     Route: 065
     Dates: start: 20121106, end: 20121113

REACTIONS (2)
  - Bradycardia [Recovered/Resolved with Sequelae]
  - Septic shock [Recovered/Resolved]
